FAERS Safety Report 4572404-8 (Version None)
Quarter: 2005Q1

REPORT INFORMATION
  Report Type: 
  Country: None (occurrence: None)
  Receive Date: 20050207
  Receipt Date: 20050121
  Transmission Date: 20050727
  Serious: Yes (Other)
  Sender: FDA-Public Use
  Company Number: US-GLAXOSMITHKLINE-A0541756A

PATIENT
  Age: 22 Year
  Sex: Female

DRUGS (5)
  1. LAMICTAL [Suspect]
     Indication: EPILEPSY
     Route: 048
     Dates: start: 20031101
  2. DOSTINEX [Concomitant]
  3. L-CARNITINE [Concomitant]
  4. TEGRETOL [Concomitant]
  5. TRANXENE [Concomitant]

REACTIONS (6)
  - AMNESIA [None]
  - CONVULSION [None]
  - GRAND MAL CONVULSION [None]
  - IRRITABILITY [None]
  - THERAPEUTIC RESPONSE UNEXPECTED [None]
  - TOOTH MALFORMATION [None]
